FAERS Safety Report 23589180 (Version 1)
Quarter: 2024Q1

REPORT INFORMATION
  Report Type: Spontaneous
  Country: CN (occurrence: CN)
  Receive Date: 20240303
  Receipt Date: 20240303
  Transmission Date: 20240410
  Serious: Yes (Other)
  Sender: FDA-Public Use
  Company Number: CN-ABBVIE-5658886

PATIENT
  Age: 21 Year
  Sex: Male
  Weight: 55 kg

DRUGS (1)
  1. UPADACITINIB [Suspect]
     Active Substance: UPADACITINIB
     Indication: Crohn^s disease
     Dosage: 45 MILLIGRAM
     Route: 048
     Dates: start: 20240203, end: 20240217

REACTIONS (5)
  - Myelosuppression [Recovering/Resolving]
  - Cough [Unknown]
  - Upper respiratory tract infection [Unknown]
  - Rhinorrhoea [Unknown]
  - Abdominal pain [Unknown]

NARRATIVE: CASE EVENT DATE: 20240201
